FAERS Safety Report 4904603-7 (Version None)
Quarter: 2006Q1

REPORT INFORMATION
  Report Type: 
  Country: None (occurrence: None)
  Receive Date: 20060208
  Receipt Date: 20051209
  Transmission Date: 20060701
  Serious: No
  Sender: FDA-Public Use
  Company Number: US-GLAXOSMITHKLINE-A0585234A

PATIENT
  Age: 53 Year
  Sex: Female

DRUGS (3)
  1. PAXIL [Suspect]
     Indication: DEPRESSION
     Route: 048
  2. WELLBUTRIN [Suspect]
     Indication: DEPRESSION
     Dosage: 75MG TWICE PER DAY
     Route: 048
  3. PREMARIN [Concomitant]

REACTIONS (5)
  - DRY EYE [None]
  - EYE DISCHARGE [None]
  - EYE IRRITATION [None]
  - NAUSEA [None]
  - VULVOVAGINAL DRYNESS [None]
